FAERS Safety Report 17949905 (Version 1)
Quarter: 2020Q2

REPORT INFORMATION
  Report Type: Spontaneous
  Country: MY (occurrence: MY)
  Receive Date: 20200625
  Receipt Date: 20200625
  Transmission Date: 20200714
  Serious: Yes (Death)
  Sender: FDA-Public Use
  Company Number: NVSC2020MY178638

PATIENT

DRUGS (3)
  1. RYDAPT [Suspect]
     Active Substance: MIDOSTAURIN
     Indication: ACUTE MYELOID LEUKAEMIA
     Dosage: (FIRST CYCLE)
     Route: 065
     Dates: start: 201906
  2. RYDAPT [Suspect]
     Active Substance: MIDOSTAURIN
     Dosage: 50 MG, BID(3RD CYCLE)
     Route: 065
     Dates: start: 202005
  3. RYDAPT [Suspect]
     Active Substance: MIDOSTAURIN
     Dosage: (SECOND CYCLE)
     Route: 065
     Dates: start: 202004

REACTIONS (1)
  - Death [Fatal]
